FAERS Safety Report 6665804-3 (Version None)
Quarter: 2010Q2

REPORT INFORMATION
  Report Type: 
  Country: None (occurrence: None)
  Receive Date: 20100402
  Receipt Date: 20100325
  Transmission Date: 20101027
  Serious: Yes (Death, Disabling, Other)
  Sender: FDA-Public Use
  Company Number: US-ROCHE-585715

PATIENT
  Sex: Female
  Weight: 55.8 kg

DRUGS (3)
  1. CAPECITABINE [Suspect]
     Dosage: TWO WEEKS ON AND ONE WEEK OFF;
     Route: 048
     Dates: start: 20080820, end: 20091217
  2. CAPECITABINE [Suspect]
     Dosage: IN MORNING AND EVENING
     Route: 048
     Dates: end: 20100126
  3. ZOMETA [Concomitant]
     Indication: OSTEOPOROSIS

REACTIONS (4)
  - MALIGNANT NEOPLASM PROGRESSION [None]
  - NO THERAPEUTIC RESPONSE [None]
  - PALMAR-PLANTAR ERYTHRODYSAESTHESIA SYNDROME [None]
  - THROMBOCYTOPENIA [None]
